FAERS Safety Report 6441588-9 (Version None)
Quarter: 2009Q4

REPORT INFORMATION
  Report Type: 
  Country: None (occurrence: None)
  Receive Date: 20091116
  Receipt Date: 20091104
  Transmission Date: 20100525
  Serious: Yes (Hospitalization)
  Sender: FDA-Public Use
  Company Number: DE-AMGEN-US361542

PATIENT
  Age: 77 Year
  Sex: Male

DRUGS (6)
  1. ENBREL [Suspect]
     Indication: RHEUMATOID ARTHRITIS
     Dosage: LYOPHILIZED, DOSE AND FREQUENCY UNKNOWN
     Route: 058
     Dates: start: 20040324
  2. LANTAREL [Suspect]
     Indication: RHEUMATOID ARTHRITIS
     Dosage: UNKNOWN
     Route: 065
  3. INSULIN [Concomitant]
     Route: 065
  4. LOCOL [Concomitant]
     Route: 065
  5. FALITHROM [Concomitant]
     Route: 065
  6. ANTIHYPERTENSIVE MEDICATION NOS [Concomitant]
     Route: 065

REACTIONS (3)
  - CORONARY ARTERIAL STENT INSERTION [None]
  - DYSPNOEA [None]
  - OEDEMA [None]
